FAERS Safety Report 24178712 (Version 1)
Quarter: 2024Q3

REPORT INFORMATION
  Report Type: Spontaneous
  Country: US (occurrence: US)
  Receive Date: 20240806
  Receipt Date: 20240806
  Transmission Date: 20241016
  Serious: Yes (Death)
  Sender: PFIZER
  Company Number: US-PFIZER INC-202400227606

PATIENT
  Sex: Male

DRUGS (1)
  1. PRAZOSIN HYDROCHLORIDE [Suspect]
     Active Substance: PRAZOSIN HYDROCHLORIDE
     Indication: Blood pressure measurement
     Dosage: UNK

REACTIONS (1)
  - Death [Fatal]
